FAERS Safety Report 16888081 (Version 1)
Quarter: 2019Q4

REPORT INFORMATION
  Report Type: Spontaneous
  Country: GB (occurrence: AE)
  Receive Date: 20191006
  Receipt Date: 20191006
  Transmission Date: 20200122
  Serious: Yes (Life-Threatening)
  Sender: FDA-Public Use
  Company Number: GB-B.I. PHARMACEUTICALS,INC./RIDGEFIELD-2019-12-105969

PATIENT
  Age: 64 Year
  Sex: Male

DRUGS (1)
  1. OFEV [Suspect]
     Active Substance: NINTEDANIB
     Indication: IDIOPATHIC PULMONARY FIBROSIS
     Route: 048
     Dates: start: 20190604, end: 20190821

REACTIONS (2)
  - Hypertension [Unknown]
  - Hepatic failure [Recovering/Resolving]
